FAERS Safety Report 13596874 (Version 2)
Quarter: 2017Q2

REPORT INFORMATION
  Report Type: Spontaneous
  Country: US (occurrence: US)
  Receive Date: 20170531
  Receipt Date: 20170602
  Transmission Date: 20170830
  Serious: No
  Sender: FDA-Public Use
  Company Number: US-TEVA-766104USA

PATIENT
  Age: 55 Year
  Sex: Female
  Weight: 67.65 kg

DRUGS (6)
  1. SYNTHROID [Concomitant]
     Active Substance: LEVOTHYROXINE SODIUM
     Indication: HYPOTHYROIDISM
  2. ATIVAN [Concomitant]
     Active Substance: LORAZEPAM
  3. NUVIGIL [Suspect]
     Active Substance: ARMODAFINIL
     Indication: NARCOLEPSY
     Dosage: 250 MILLIGRAM DAILY;
  4. D-AMPHETAMINE [Concomitant]
     Active Substance: DEXTROAMPHETAMINE
  5. L-TYROSINE [Concomitant]
  6. NUVIGIL [Suspect]
     Active Substance: ARMODAFINIL
     Indication: MAJOR DEPRESSION
     Dosage: 500 MILLIGRAM DAILY;
     Dates: start: 2011

REACTIONS (2)
  - Product use in unapproved indication [Unknown]
  - Therapeutic response unexpected [Not Recovered/Not Resolved]

NARRATIVE: CASE EVENT DATE: 20090922
